FAERS Safety Report 10016572 (Version 3)
Quarter: 2014Q2

REPORT INFORMATION
  Report Type: Spontaneous
  Country: JP (occurrence: JP)
  Receive Date: 20140317
  Receipt Date: 20140514
  Transmission Date: 20141212
  Serious: Yes (Life-Threatening, Hospitalization, Other)
  Sender: FDA-Public Use
  Company Number: JP-ABBVIE-14P-087-1213471-00

PATIENT
  Age: 45 Year
  Sex: Female
  Weight: 55 kg

DRUGS (1)
  1. LEUPLIN FOR INJECTION KIT [Suspect]
     Indication: UTERINE LEIOMYOMA
     Route: 058
     Dates: start: 201301, end: 201305

REACTIONS (2)
  - Carcinoid tumour [Unknown]
  - Cholangiocarcinoma [Unknown]
